FAERS Safety Report 6267258-8 (Version None)
Quarter: 2009Q3

REPORT INFORMATION
  Report Type: 
  Country: None (occurrence: None)
  Receive Date: 20090714
  Receipt Date: 20090702
  Transmission Date: 20100115
  Serious: Yes (Death, Hospitalization)
  Sender: FDA-Public Use
  Company Number: GR-PFIZER INC-2009228826

PATIENT
  Age: 72 Year

DRUGS (3)
  1. SUTENT [Suspect]
     Indication: RENAL CELL CARCINOMA
     Dosage: 50 MG, 1X/DAY
     Route: 048
     Dates: start: 20090430, end: 20090608
  2. ZOMETA [Concomitant]
     Dosage: UNK
     Route: 042
     Dates: start: 20090430, end: 20090430
  3. ZOMETA [Concomitant]
     Dosage: UNK
     Route: 042
     Dates: start: 20090526, end: 20090526

REACTIONS (2)
  - CARDIAC FAILURE [None]
  - PULMONARY OEDEMA [None]
